FAERS Safety Report 4599024-3 (Version None)
Quarter: 2005Q1

REPORT INFORMATION
  Report Type: 
  Country: None (occurrence: None)
  Receive Date: 20050302
  Receipt Date: 20050221
  Transmission Date: 20050727
  Serious: Yes (Hospitalization)
  Sender: FDA-Public Use
  Company Number: 200410628BYL

PATIENT
  Age: 71 Year
  Sex: Male
  Weight: 53 kg

DRUGS (13)
  1. ASPIRIN [Suspect]
     Indication: THROMBOSIS PROPHYLAXIS
     Dosage: 100 MG, QD, ORAL
     Route: 048
     Dates: start: 20030424, end: 20030602
  2. ASPIRIN [Suspect]
     Indication: THROMBOSIS PROPHYLAXIS
     Dosage: 100 MG, QD, ORAL
     Route: 048
     Dates: start: 20030620
  3. TICLOPIDINE HCL [Suspect]
     Indication: THROMBOSIS PROPHYLAXIS
     Dosage: 200 MG, TOTAL DAILY, ORAL
     Route: 048
     Dates: start: 20030423, end: 20030602
  4. DIOVAN [Suspect]
     Indication: THROMBOSIS PROPHYLAXIS
     Dosage: 20 MG, QD, ORAL
     Route: 048
     Dates: start: 20030428, end: 20030602
  5. SIGMART (NICORANDIL) [Suspect]
     Indication: ANGINA PECTORIS
     Dosage: 15 MG, TOTAL DAILY, ORAL
     Route: 048
     Dates: start: 20030425, end: 20030602
  6. DIGOXIN [Suspect]
     Indication: CARDIAC FAILURE CONGESTIVE
     Dosage: 0.125 MG, QD, ORAL
     Route: 048
     Dates: start: 20030429, end: 20030602
  7. LASIX [Suspect]
     Indication: CARDIAC FAILURE CONGESTIVE
     Dosage: 20 + 40 MGD, QD + TOTAL DAILY, INTRAVENOUS - SEE IMAGE
     Route: 042
     Dates: start: 20030428, end: 20030602
  8. LASIX [Suspect]
     Indication: CARDIAC FAILURE CONGESTIVE
     Dosage: 20 + 40 MGD, QD + TOTAL DAILY, INTRAVENOUS - SEE IMAGE
     Route: 042
     Dates: start: 20030620, end: 20030623
  9. LASIX [Suspect]
     Indication: CARDIAC FAILURE CONGESTIVE
     Dosage: 20 + 40 MGD, QD + TOTAL DAILY, INTRAVENOUS - SEE IMAGE
     Route: 042
     Dates: start: 20030624, end: 20030626
  10. LUPRAC (TORASEMIDE) [Suspect]
     Indication: CARDIAC FAILURE CONGESTIVE
     Dosage: 8 MG, QD, ORAL
     Route: 048
     Dates: start: 20030509, end: 20030602
  11. ALDACTONE [Suspect]
     Indication: CARDIAC FAILURE CONGESTIVE
     Dosage: 25 MG, QD, ORAL - SEE IMAGE
     Route: 048
     Dates: start: 20030425, end: 20030602
  12. ALDACTONE [Suspect]
     Indication: CARDIAC FAILURE CONGESTIVE
     Dosage: 25 MG, QD, ORAL - SEE IMAGE
     Route: 048
     Dates: start: 20030620
  13. FRANDOL [Concomitant]

REACTIONS (1)
  - HEPATOTOXICITY [None]
